FAERS Safety Report 23963446 (Version 1)
Quarter: 2024Q2

REPORT INFORMATION
  Report Type: Spontaneous
  Country: CN (occurrence: CN)
  Receive Date: 20240611
  Receipt Date: 20240611
  Transmission Date: 20240716
  Serious: Yes (Hospitalization)
  Sender: FDA-Public Use
  Company Number: CN-Merck Healthcare KGaA-2024029834

PATIENT
  Age: 62 Year
  Sex: Male
  Weight: 44 kg

DRUGS (5)
  1. ERBITUX [Suspect]
     Active Substance: CETUXIMAB
     Indication: Oropharyngeal cancer
     Dosage: 350 MG, UNKNOWN
     Route: 041
     Dates: start: 20240309
  2. DOCETAXEL [Suspect]
     Active Substance: DOCETAXEL\DOCETAXEL ANHYDROUS
     Indication: Oropharyngeal cancer
     Dosage: 75 MG, DAILY
     Route: 041
     Dates: start: 20240309, end: 20240309
  3. CISPLATIN [Suspect]
     Active Substance: CISPLATIN
     Indication: Oropharyngeal cancer
     Dosage: 40 MG, DAILY
     Route: 041
     Dates: start: 20240309, end: 20240309
  4. CISPLATIN [Suspect]
     Active Substance: CISPLATIN
     Dosage: 35 MG, DAILY
     Route: 041
     Dates: start: 20240309, end: 20240320
  5. FLUOROURACIL [Suspect]
     Active Substance: FLUOROURACIL
     Indication: Oropharyngeal cancer
     Dosage: 4.25 G, DAILY
     Route: 065
     Dates: start: 20240309, end: 20240313

REACTIONS (1)
  - Myelosuppression [Recovering/Resolving]

NARRATIVE: CASE EVENT DATE: 20240316
